FAERS Safety Report 5590375-2 (Version None)
Quarter: 2008Q1

REPORT INFORMATION
  Report Type: 
  Country: None (occurrence: None)
  Receive Date: 20080109
  Receipt Date: 20071231
  Transmission Date: 20080703
  Serious: Yes (Death, Life-Threatening, Hospitalization)
  Sender: FDA-Public Use
  Company Number: 2008US000015

PATIENT
  Age: 59 Year
  Sex: Male

DRUGS (13)
  1. PROGRAF [Suspect]
     Indication: LIVER TRANSPLANT
     Dosage: 1 MG, BID, ORAL
     Route: 048
     Dates: start: 20051128, end: 20061024
  2. MYCOPHENOLATE MOFETIL [Suspect]
     Indication: LIVER TRANSPLANT
     Dosage: 1000 MG, BID, ORAL
     Route: 048
     Dates: start: 20051126
  3. COLACE              (DOCUSATE SODIIJM) [Concomitant]
  4. WELLBUTRIN [Concomitant]
  5. URSODIOL                     (URSODEOXYCHOLIC ACID_ [Concomitant]
  6. PROZAC [Concomitant]
  7. MULTIVITAMIN [Concomitant]
  8. PEGASYS [Concomitant]
  9. TERAZOSIN HCL [Concomitant]
  10. LORCET              (HYDROCODONE BITARTRATE) [Concomitant]
  11. NEXIUM [Concomitant]
  12. MIDODRINE HYDROCHLORIDE [Concomitant]
  13. AQUAMEPHYTON                 (PHYTOMENADIONE) [Concomitant]

REACTIONS (8)
  - DEHYDRATION [None]
  - FAILURE TO THRIVE [None]
  - HAEMODIALYSIS [None]
  - HAEMORRHOIDS [None]
  - HEPATITIS C [None]
  - MALNUTRITION [None]
  - RENAL FAILURE CHRONIC [None]
  - SEPSIS [None]
